FAERS Safety Report 9642824 (Version 3)
Quarter: 2013Q4

REPORT INFORMATION
  Report Type: Spontaneous
  Country: PT (occurrence: PT)
  Receive Date: 20131024
  Receipt Date: 20131115
  Transmission Date: 20140711
  Serious: Yes (Other)
  Sender: FDA-Public Use
  Company Number: PT-PFIZER INC-2013300361

PATIENT
  Age: 27 Year
  Sex: Male

DRUGS (4)
  1. VECURONIUM BROMIDE [Suspect]
     Indication: INDUCTION OF ANAESTHESIA
     Dosage: UNK
  2. ADRENALINE [Suspect]
     Dosage: UNK
  3. FENTANYL [Suspect]
     Indication: INDUCTION OF ANAESTHESIA
     Dosage: UNK
  4. PENTOTHAL [Suspect]
     Indication: INDUCTION OF ANAESTHESIA
     Dosage: UNK

REACTIONS (5)
  - Acute pulmonary oedema [Unknown]
  - Electrocardiogram ST segment depression [Unknown]
  - Cardiogenic shock [Unknown]
  - Anaphylactic reaction [Unknown]
  - Tachycardia [Unknown]
